FAERS Safety Report 6942573-0 (Version None)
Quarter: 2010Q3

REPORT INFORMATION
  Report Type: 
  Country: None (occurrence: None)
  Receive Date: 20100826
  Receipt Date: 20100823
  Transmission Date: 20110219
  Serious: Yes (Death)
  Sender: FDA-Public Use
  Company Number: TR-ELI_LILLY_AND_COMPANY-TR201008006146

PATIENT
  Age: 51 Year
  Sex: Female

DRUGS (2)
  1. HUMULIN R [Suspect]
     Indication: DIABETES MELLITUS
     Dosage: 4 U, 3/D MORNING, NOON AND EVENING
     Route: 058
     Dates: start: 20100301, end: 20100711
  2. PHENYTOIN [Concomitant]
     Indication: OEDEMA
     Dosage: UNK, DAILY (1/D)
     Route: 048
     Dates: start: 20090721, end: 20100711

REACTIONS (1)
  - RESPIRATORY FAILURE [None]
